FAERS Safety Report 9909036 (Version 1)
Quarter: 2014Q1

REPORT INFORMATION
  Report Type: Spontaneous
  Country: US (occurrence: None)
  Receive Date: 20140214
  Receipt Date: 20140214
  Transmission Date: 20141002
  Serious: Yes (Death, Hospitalization)
  Sender: FDA-Public Use
  Company Number: None

PATIENT
  Age: 66 Year
  Sex: Male
  Weight: 84.8 kg

DRUGS (18)
  1. XARELTO [Suspect]
     Indication: THROMBOSIS
  2. XARELTO [Suspect]
     Indication: PULMONARY EMBOLISM
  3. CARVEDILOL [Suspect]
     Indication: CARDIOMYOPATHY
     Dosage: CHRONIC
     Route: 048
  4. ZOCOR [Concomitant]
  5. VICODIN [Concomitant]
  6. FISH OIL [Concomitant]
  7. VITD3 [Concomitant]
  8. LASIX [Concomitant]
  9. ZINC [Concomitant]
  10. PRILOSEC [Concomitant]
  11. KCL [Concomitant]
  12. PREDNISONE [Concomitant]
  13. DETROL LA [Concomitant]
  14. COZAAR [Concomitant]
  15. ALLEGRA [Concomitant]
  16. ARAVA [Concomitant]
  17. BUTRANS [Concomitant]
  18. ELAVIL [Concomitant]

REACTIONS (4)
  - Cerebrovascular accident [None]
  - Cerebral haemorrhage [None]
  - Brain death [None]
  - Blood pressure increased [None]
